FAERS Safety Report 5811334-8 (Version None)
Quarter: 2008Q3

REPORT INFORMATION
  Report Type: 
  Country: None (occurrence: None)
  Receive Date: 20080710
  Receipt Date: 20080703
  Transmission Date: 20090109
  Serious: Yes (Death)
  Sender: FDA-Public Use
  Company Number: 2008JP003156

PATIENT

DRUGS (7)
  1. PROGRAF [Suspect]
     Indication: LIVER TRANSPLANT
  2. ENDOXAN (CYCLOPHOSPHAMIDE) FORMULATION UNKNOWN [Concomitant]
  3. STEROID FORMULATION UNKNOWN [Concomitant]
  4. CELLCEPT [Concomitant]
  5. PGE 1 (ALPROSTADIL) FORMULATION UNKNOWN [Concomitant]
  6. FRAGMIN (DALTEPARIN SODIUM) FORMULATION UNKNOWN [Concomitant]
  7. THYMOGLOBULIN (ANTITHYMOCYTE IMMUNOGLOBULIN) FORMULATION UNKNOWN [Concomitant]

REACTIONS (1)
  - INFECTION [None]
